FAERS Safety Report 10703631 (Version 1)
Quarter: 2015Q1

REPORT INFORMATION
  Report Type: Spontaneous
  Country: FR (occurrence: FR)
  Receive Date: 20150112
  Receipt Date: 20150112
  Transmission Date: 20150721
  Serious: Yes (Hospitalization)
  Sender: FDA-Public Use
  Company Number: FR-JNJFOC-20150104159

PATIENT
  Age: 39 Year
  Sex: Male

DRUGS (13)
  1. COLCHICINE. [Concomitant]
     Active Substance: COLCHICINE
     Route: 065
  2. VALACICLOVIR [Concomitant]
     Active Substance: VALACYCLOVIR HYDROCHLORIDE
     Route: 065
  3. LYRICA [Concomitant]
     Active Substance: PREGABALIN
     Route: 065
  4. LAROXYL [Concomitant]
     Active Substance: AMITRIPTYLINE
     Route: 065
  5. REMICADE [Suspect]
     Active Substance: INFLIXIMAB
     Indication: PRODUCT USED FOR UNKNOWN INDICATION
     Dosage: 5MG/KG
     Route: 042
     Dates: start: 20140512, end: 201405
  6. PREDNISONE. [Concomitant]
     Active Substance: PREDNISONE
     Route: 065
  7. DIFFU K [Concomitant]
     Active Substance: POTASSIUM CHLORIDE
     Route: 065
  8. BARACLUDE [Concomitant]
     Active Substance: ENTECAVIR
     Route: 065
  9. INEXIUM [Concomitant]
     Active Substance: ESOMEPRAZOLE
     Route: 065
  10. REMICADE [Suspect]
     Active Substance: INFLIXIMAB
     Indication: PRODUCT USED FOR UNKNOWN INDICATION
     Dosage: 5MG/KG
     Route: 042
     Dates: start: 201310
  11. IMUREL [Concomitant]
     Active Substance: AZATHIOPRINE SODIUM
     Route: 065
  12. KARDEGIC [Concomitant]
     Active Substance: ASPIRIN LYSINE
     Route: 065
  13. TRAMADOL [Concomitant]
     Active Substance: TRAMADOL
     Route: 065

REACTIONS (4)
  - Abdominal pain [Recovered/Resolved]
  - Diarrhoea [Recovered/Resolved]
  - Campylobacter gastroenteritis [Recovered/Resolved]
  - Asthenia [Recovered/Resolved]

NARRATIVE: CASE EVENT DATE: 201405
